FAERS Safety Report 7298732-3 (Version None)
Quarter: 2011Q1

REPORT INFORMATION
  Report Type: 
  Country: None (occurrence: None)
  Receive Date: 20110217
  Receipt Date: 20110214
  Transmission Date: 20110831
  Serious: Yes (Hospitalization, Other)
  Sender: FDA-Public Use
  Company Number: IT-JNJFOC-20101208399

PATIENT
  Sex: Male

DRUGS (1)
  1. HALDOL [Suspect]
     Indication: ILL-DEFINED DISORDER
     Route: 048

REACTIONS (4)
  - DYSTONIA [None]
  - DYSKINESIA [None]
  - ACCIDENTAL OVERDOSE [None]
  - PSYCHOTIC DISORDER [None]
